FAERS Safety Report 6132779-5 (Version None)
Quarter: 2009Q1

REPORT INFORMATION
  Report Type: 
  Country: None (occurrence: None)
  Receive Date: 20090326
  Receipt Date: 20090316
  Transmission Date: 20090719
  Serious: Yes (Hospitalization)
  Sender: FDA-Public Use
  Company Number: AU-WYE-H08647309

PATIENT
  Age: 73 Year
  Sex: Female

DRUGS (8)
  1. SOMAC [Suspect]
     Indication: OESOPHAGEAL DISORDER
     Dosage: UNKNOWN
     Dates: end: 20080128
  2. COLOXYL WITH SENNA [Concomitant]
     Indication: CONSTIPATION
     Dosage: 4 DOSAGE FORMS
  3. LIPEX [Concomitant]
     Indication: METABOLIC DISORDER
  4. CIPROFLOXACIN [Suspect]
     Indication: DIARRHOEA
     Dates: start: 20080120, end: 20080128
  5. SLOW-K [Suspect]
     Route: 048
     Dates: end: 20080128
  6. ISOPTIN - SLOW RELEASE [Concomitant]
     Indication: HYPERTENSION
  7. ACETYLSALICYLIC ACID [Concomitant]
     Dosage: 100 MG
  8. AVAPRO [Suspect]
     Indication: HYPERTENSION
     Dates: start: 20080120, end: 20080128

REACTIONS (1)
  - RENAL FAILURE ACUTE [None]
